FAERS Safety Report 4724956-2 (Version None)
Quarter: 2005Q3

REPORT INFORMATION
  Report Type: 
  Country: None (occurrence: None)
  Receive Date: 20050726
  Receipt Date: 20050715
  Transmission Date: 20060218
  Serious: Yes (Life-Threatening, Hospitalization)
  Sender: FDA-Public Use
  Company Number: MU-ROCHE-410948

PATIENT
  Age: 37 Year
  Sex: Female
  Weight: 46.5 kg

DRUGS (3)
  1. PEGASYS [Suspect]
     Route: 065
  2. PEGASYS [Suspect]
     Route: 065
     Dates: end: 20050709
  3. NEORECORMON [Concomitant]

REACTIONS (11)
  - ACINETOBACTER INFECTION [None]
  - ALANINE AMINOTRANSFERASE INCREASED [None]
  - ANAEMIA [None]
  - ASPARTATE AMINOTRANSFERASE INCREASED [None]
  - CIRCULATORY COLLAPSE [None]
  - COMA [None]
  - GAMMA-GLUTAMYLTRANSFERASE INCREASED [None]
  - HAEMODIALYSIS [None]
  - HEPATIC ENZYME INCREASED [None]
  - HEPATOSPLENOMEGALY [None]
  - SEPTIC SHOCK [None]
